FAERS Safety Report 16939211 (Version 1)
Quarter: 2019Q4

REPORT INFORMATION
  Report Type: Spontaneous
  Country: DE (occurrence: DE)
  Receive Date: 20191021
  Receipt Date: 20191021
  Transmission Date: 20200122
  Serious: Yes (Death)
  Sender: FDA-Public Use
  Company Number: DE-CHEPLA-C20190940

PATIENT
  Age: 45 Year
  Sex: Male
  Weight: 88 kg

DRUGS (66)
  1. AQUAPHOR (XIPAMIDE) [Concomitant]
     Active Substance: XIPAMIDE
     Dosage: UNKNOWN
     Route: 048
     Dates: start: 19981120, end: 19981120
  2. FILGRASTIM [Suspect]
     Active Substance: FILGRASTIM
     Indication: COMPLICATIONS OF BONE MARROW TRANSPLANT
     Route: 042
     Dates: start: 19981127, end: 19981130
  3. FORTUM [CEFTAZIDIME] [Suspect]
     Active Substance: CEFTAZIDIME
     Indication: INFECTION
     Dosage: 2 G, QD
     Route: 042
     Dates: start: 19981126, end: 19981205
  4. DIFLUCAN [Suspect]
     Active Substance: FLUCONAZOLE
     Indication: ANTIFUNGAL PROPHYLAXIS
     Dosage: 200 MG, QD
     Route: 042
     Dates: end: 19981119
  5. CANDIO-HERMAL [Concomitant]
     Active Substance: NYSTATIN
     Indication: CANDIDA INFECTION
     Dosage: UNKNOWN
     Route: 061
     Dates: start: 19981204, end: 19981204
  6. DEXTROSE. [Concomitant]
     Active Substance: DEXTROSE
     Indication: PARENTERAL NUTRITION
     Dosage: UNKNOWN
     Route: 042
  7. SOLU-DECORTIN H [Concomitant]
     Indication: GRAFT VERSUS HOST DISEASE
     Route: 042
     Dates: start: 19981119, end: 19990121
  8. TARIVID [OFLOXACIN] [Concomitant]
     Indication: INFECTION
     Route: 042
     Dates: end: 19981110
  9. ASCORBIC ACID. [Concomitant]
     Active Substance: ASCORBIC ACID
     Dosage: UNKNOWN
     Route: 065
  10. SULFAMETHOXAZOLE/TRIMETHOPRIM [Suspect]
     Active Substance: SULFAMETHOXAZOLE\TRIMETHOPRIM
     Indication: INFECTION
     Route: 042
     Dates: start: 19981204, end: 19981206
  11. FUROSEMIDE. [Suspect]
     Active Substance: FUROSEMIDE
     Indication: OEDEMA
     Dosage: 10 MG, QD
     Route: 042
     Dates: start: 19981208
  12. CLONT [METRONIDAZOLE] [Concomitant]
     Active Substance: METRONIDAZOLE
     Indication: INFECTION
     Route: 042
  13. CALCIUM [Concomitant]
     Active Substance: CALCIUM
     Indication: BLOOD CALCIUM DECREASED
     Dosage: UNKNOWN
     Route: 042
  14. ALPROSTADIL. [Concomitant]
     Active Substance: ALPROSTADIL
     Indication: CARDIOVASCULAR DISORDER
     Route: 042
     Dates: start: 19981111, end: 19981119
  15. FORTUM [CEFTAZIDIME] [Suspect]
     Active Substance: CEFTAZIDIME
     Indication: INFECTION
     Dosage: 2 G, QD
     Route: 042
     Dates: start: 19981111, end: 19981120
  16. TAVOR (LORAZEPAM) [Suspect]
     Active Substance: LORAZEPAM
     Indication: SEDATION
     Dosage: 1 MG, BID
     Route: 042
     Dates: end: 19981125
  17. REMERGIL [Suspect]
     Active Substance: MIRTAZAPINE
     Indication: DEPRESSION
     Route: 048
     Dates: start: 19981203, end: 19981203
  18. CIPROFLOXACIN. [Suspect]
     Active Substance: CIPROFLOXACIN
     Indication: CYSTITIS
     Dosage: 400 MG, QD
     Route: 042
     Dates: start: 19981130, end: 19990101
  19. PREDNISOLONE. [Suspect]
     Active Substance: PREDNISOLONE
     Indication: ILL-DEFINED DISORDER
     Dosage: UNKNOWN
     Route: 065
     Dates: start: 19981119, end: 19981121
  20. PREDNISOLONE. [Suspect]
     Active Substance: PREDNISOLONE
     Indication: CONJUNCTIVITIS
     Dosage: UNKNOWN
     Route: 061
     Dates: start: 19981204, end: 19981204
  21. INSULIN HUMAN [Concomitant]
     Active Substance: INSULIN HUMAN
     Indication: DIABETES MELLITUS
     Route: 042
     Dates: start: 19981115, end: 19981207
  22. DOLANTIN [Concomitant]
     Active Substance: MEPERIDINE
     Indication: SEDATION
     Route: 042
     Dates: start: 19981111, end: 19981121
  23. INZOLEN [Concomitant]
     Active Substance: MAGNESIUM ASPARTATE\POTASSIUM ASPARTATE
     Dosage: UNKNOWN
     Route: 065
  24. MORPHINE [Concomitant]
     Active Substance: MORPHINE
     Indication: SEDATION
     Route: 042
     Dates: start: 19981111, end: 19981123
  25. SODIUM CHLORIDE. [Concomitant]
     Active Substance: SODIUM CHLORIDE
     Indication: HYPONATRAEMIA
     Dosage: UNKNOWN
     Route: 042
     Dates: start: 19981113
  26. PHENYLEPHRINE HYDROCHLORIDE. [Concomitant]
     Active Substance: PHENYLEPHRINE HYDROCHLORIDE
     Dosage: UNKNOWN
     Route: 065
     Dates: start: 19981113
  27. NOVALGIN (METAMIZOLE SODIUM) [Suspect]
     Active Substance: METAMIZOLE SODIUM
     Indication: PAIN
     Dosage: 1 G, QD
     Route: 042
     Dates: start: 19981111, end: 19981121
  28. NOVALGIN (METAMIZOLE SODIUM) [Suspect]
     Active Substance: METAMIZOLE SODIUM
     Indication: PAIN
     Dosage: 1 G, QD
     Route: 042
     Dates: start: 19981205, end: 19981205
  29. NOVALGIN (METAMIZOLE SODIUM) [Suspect]
     Active Substance: METAMIZOLE SODIUM
     Indication: PAIN
     Dosage: 1 G, QD
     Route: 042
     Dates: start: 19981208
  30. TOBRAMYCIN. [Suspect]
     Active Substance: TOBRAMYCIN
     Indication: INFECTION
     Dosage: 520 MG, QD
     Route: 042
     Dates: start: 19981121, end: 19981121
  31. PREDNISOLONE. [Suspect]
     Active Substance: PREDNISOLONE
     Indication: CONJUNCTIVITIS
     Dosage: UNKNOWN
     Route: 061
     Dates: start: 19981207, end: 19990101
  32. MAGNESIUM [Concomitant]
     Active Substance: MAGNESIUM
     Indication: BLOOD MAGNESIUM DECREASED
     Dosage: UNKNOWN
     Route: 042
     Dates: end: 19981202
  33. METHOTREXATE. [Concomitant]
     Active Substance: METHOTREXATE
     Indication: BONE MARROW TRANSPLANT
     Route: 042
     Dates: start: 19981111, end: 19981111
  34. PEPDUL [Concomitant]
     Active Substance: FAMOTIDINE
     Indication: PROPHYLAXIS
     Route: 042
     Dates: end: 19981110
  35. SODIUM BICARBONATE. [Concomitant]
     Active Substance: SODIUM BICARBONATE
     Indication: ACIDOSIS
     Dosage: UNKNOWN
     Route: 042
     Dates: start: 19981201, end: 19981206
  36. VANCOMYCIN [Concomitant]
     Active Substance: VANCOMYCIN
     Indication: INFECTION
     Route: 042
     Dates: start: 19981111
  37. ACICLOVIR [Concomitant]
     Active Substance: ACYCLOVIR
     Indication: PROPHYLAXIS
     Route: 042
     Dates: end: 19981122
  38. KONAKION [Suspect]
     Active Substance: PHYTONADIONE
     Route: 042
     Dates: start: 19981123, end: 19981207
  39. SULFAMETHOXAZOLE/TRIMETHOPRIM [Suspect]
     Active Substance: SULFAMETHOXAZOLE\TRIMETHOPRIM
     Indication: INFECTION
     Route: 042
     Dates: start: 19981127, end: 19981129
  40. RESONIUM A [Suspect]
     Active Substance: SODIUM POLYSTYRENE SULFONATE
     Indication: HYPERKALAEMIA
     Dosage: 30 G, QD
     Route: 048
     Dates: start: 19981129, end: 19981129
  41. DOPAMINE HYDROCHLORIDE. [Suspect]
     Active Substance: DOPAMINE HYDROCHLORIDE
     Indication: HYPOTENSION
     Route: 042
     Dates: start: 19981119, end: 19990101
  42. ZIENAM [Suspect]
     Active Substance: CILASTATIN SODIUM\IMIPENEM
     Indication: INFECTION
     Dosage: 500 MG, BID
     Route: 042
     Dates: start: 19981205, end: 19990101
  43. AMBISOME [Suspect]
     Active Substance: AMPHOTERICIN B
     Indication: FUNGAL INFECTION
     Dosage: 300 MG, UNK
     Route: 042
     Dates: start: 19981122, end: 19990101
  44. AMPHOTERICIN B. [Concomitant]
     Active Substance: AMPHOTERICIN B
     Indication: FUNGAL INFECTION
     Dosage: UNKNOWN
     Route: 042
     Dates: start: 19981117, end: 19981121
  45. LENOGRASTIM [Concomitant]
     Active Substance: LENOGRASTIM
     Indication: BONE MARROW TRANSPLANT
     Dosage: UNKNOWN
     Route: 042
     Dates: end: 19981128
  46. SANDIMMUN [Concomitant]
     Active Substance: CYCLOSPORINE
     Indication: BONE MARROW TRANSPLANT
     Dosage: UNKNOWN
     Route: 042
  47. TAVEGIL [CLEMASTINE] [Concomitant]
     Active Substance: CLEMASTINE
     Indication: GRAFT VERSUS HOST DISEASE
     Dosage: UNKNOWN
     Route: 042
     Dates: start: 19981118, end: 19981121
  48. DIPEPTAMIN [Concomitant]
     Indication: PARENTERAL NUTRITION
     Route: 042
     Dates: end: 19981128
  49. SULFAMETHOXAZOLE/TRIMETHOPRIM [Suspect]
     Active Substance: SULFAMETHOXAZOLE\TRIMETHOPRIM
     Indication: INFECTION
     Route: 042
     Dates: start: 19981113, end: 19981120
  50. NOVALGIN (METAMIZOLE SODIUM) [Suspect]
     Active Substance: METAMIZOLE SODIUM
     Indication: PAIN
     Dosage: UNKNOWN
     Route: 042
     Dates: start: 19981124, end: 19981128
  51. GENTAMICIN SULFATE. [Suspect]
     Active Substance: GENTAMICIN SULFATE
     Indication: CONJUNCTIVITIS
     Route: 047
     Dates: start: 19981129, end: 19981129
  52. REMERGIL [Suspect]
     Active Substance: MIRTAZAPINE
     Indication: DEPRESSION
     Route: 048
     Dates: start: 19981126, end: 19981130
  53. ZIENAM [Suspect]
     Active Substance: CILASTATIN SODIUM\IMIPENEM
     Indication: INFECTION
     Dosage: 500 MG, BID
     Route: 042
     Dates: start: 19981121, end: 19981128
  54. ACETYLCYSTEINE. [Concomitant]
     Active Substance: ACETYLCYSTEINE
     Indication: UNEVALUABLE EVENT
     Dosage: UNKNOWN
     Route: 042
     Dates: start: 19981117, end: 19981119
  55. ANTRA [OMEPRAZOLE] [Concomitant]
     Active Substance: OMEPRAZOLE
     Dosage: UNKNOWN
     Route: 065
  56. GANCICLOVIR. [Suspect]
     Active Substance: GANCICLOVIR
     Indication: PRODUCT USED FOR UNKNOWN INDICATION
     Dosage: 225 MG TWICE DAILY
     Route: 042
     Dates: start: 19981127, end: 19990101
  57. LASIX [Suspect]
     Active Substance: FUROSEMIDE
     Indication: OEDEMA
     Dosage: 40 MG, UNK
     Route: 042
     Dates: start: 19981126, end: 19981126
  58. FUROSEMIDE. [Suspect]
     Active Substance: FUROSEMIDE
     Indication: OEDEMA
     Dosage: 10 MG, QD
     Route: 042
     Dates: start: 19981205, end: 19981205
  59. GLOBULIN V [Concomitant]
     Indication: BONE MARROW TRANSPLANT
     Dosage: UNKNOWN
     Route: 042
     Dates: start: 19981115, end: 19981126
  60. KONAKION [Suspect]
     Active Substance: PHYTONADIONE
     Indication: COAGULOPATHY
     Dosage: 10 MG, QD
     Route: 042
     Dates: start: 19981112
  61. METHYLPREDNISOLONE. [Suspect]
     Active Substance: METHYLPREDNISOLONE
     Indication: GRAFT VERSUS HOST DISEASE
     Dosage: 64 MG, UNK
     Route: 042
     Dates: start: 19981121, end: 19990101
  62. VOMEX A [Suspect]
     Active Substance: DIMENHYDRINATE
     Indication: NAUSEA
     Dosage: UNKNOWN
     Route: 042
     Dates: start: 19981118, end: 19981130
  63. FUROSEMIDE. [Suspect]
     Active Substance: FUROSEMIDE
     Indication: OEDEMA
     Dosage: 10 MG, QD
     Route: 042
     Dates: start: 19981202, end: 19981203
  64. AMPHO MORONAL [Concomitant]
     Active Substance: AMPHOTERICIN B
     Indication: ANTIFUNGAL PROPHYLAXIS
     Route: 048
  65. K-DUR [Concomitant]
     Active Substance: POTASSIUM CHLORIDE
     Indication: HYPOKALAEMIA
     Dosage: UNKNOWN
     Route: 042
  66. INTRALIPID [GLYCINE MAX SEED OIL] [Concomitant]
     Dosage: UNKNOWN
     Route: 065

REACTIONS (3)
  - Multiple organ dysfunction syndrome [Fatal]
  - Toxic epidermal necrolysis [Fatal]
  - Graft versus host disease [Fatal]

NARRATIVE: CASE EVENT DATE: 19981121
